FAERS Safety Report 4731279-4 (Version None)
Quarter: 2005Q3

REPORT INFORMATION
  Report Type: 
  Country: None (occurrence: None)
  Receive Date: 20050802
  Receipt Date: 20050722
  Transmission Date: 20060218
  Serious: Yes (Hospitalization)
  Sender: FDA-Public Use
  Company Number: TW-BRISTOL-MYERS SQUIBB COMPANY-13047576

PATIENT
  Age: 54 Year
  Sex: Female

DRUGS (2)
  1. CISPLATIN [Suspect]
     Indication: CERVIX CARCINOMA
     Route: 042
     Dates: start: 20050420, end: 20050420
  2. IRINOTECAN HCL [Suspect]
     Indication: CERVIX CARCINOMA
     Dates: start: 20050304, end: 20050504

REACTIONS (2)
  - HYPOTENSION [None]
  - INTESTINAL OBSTRUCTION [None]
